FAERS Safety Report 6768044-2 (Version None)
Quarter: 2010Q2

REPORT INFORMATION
  Report Type: 
  Country: None (occurrence: None)
  Receive Date: 20100614
  Receipt Date: 20100610
  Transmission Date: 20101027
  Serious: Yes (Hospitalization)
  Sender: FDA-Public Use
  Company Number: B0658679A

PATIENT
  Sex: Male

DRUGS (9)
  1. ZELITREX [Suspect]
     Indication: PROPHYLAXIS
     Dosage: 500MG TWICE PER DAY
     Route: 048
     Dates: start: 20100312, end: 20100513
  2. BACTRIM DS [Suspect]
     Indication: PROPHYLAXIS
     Dosage: 1TAB THREE TIMES PER WEEK
     Route: 048
     Dates: start: 20100312, end: 20100512
  3. MABTHERA [Suspect]
     Dosage: 600MG CYCLIC
     Route: 042
     Dates: start: 20100311, end: 20100513
  4. ENDOXAN [Suspect]
     Dosage: 450MG CYCLIC
     Route: 048
     Dates: start: 20100312, end: 20100516
  5. FLUDARA [Suspect]
     Dosage: 70MG CYCLIC
     Route: 048
     Dates: start: 20100312, end: 20100516
  6. ZYLORIC [Concomitant]
     Dosage: 1TAB PER DAY
     Route: 048
  7. ZOPHREN [Concomitant]
     Indication: NAUSEA
     Route: 048
     Dates: start: 20100512, end: 20100512
  8. FOSINOPRIL SODIUM AND HYDROCHLOROTHIAZIDE [Concomitant]
     Route: 065
  9. TAHOR [Concomitant]
     Route: 065

REACTIONS (6)
  - DERMATITIS EXFOLIATIVE [None]
  - PRURITUS [None]
  - PURPURA [None]
  - RASH ERYTHEMATOUS [None]
  - RASH GENERALISED [None]
  - SKIN EXFOLIATION [None]
